FAERS Safety Report 8427478-0 (Version None)
Quarter: 2012Q2

REPORT INFORMATION
  Report Type: 
  Country: None (occurrence: None)
  Receive Date: 20120611
  Receipt Date: 20120531
  Transmission Date: 20120825
  Serious: Yes (Other)
  Sender: FDA-Public Use
  Company Number: JP-ELI_LILLY_AND_COMPANY-JP201206001027

PATIENT

DRUGS (48)
  1. ADCIRCA [Suspect]
     Dosage: 40 MG, UNK
     Route: 064
  2. BERAPROST SODIUM [Concomitant]
     Indication: PULMONARY ARTERIAL HYPERTENSION
     Dosage: 240 UG, UNK
     Route: 064
  3. BERAPROST SODIUM [Concomitant]
     Dosage: 240 UG, UNK
     Route: 064
  4. ASPARA K [Concomitant]
     Dosage: 600 MG, UNK
     Route: 064
  5. DORNER [Concomitant]
     Indication: PULMONARY ARTERIAL HYPERTENSION
     Route: 064
  6. DORNER [Concomitant]
     Route: 064
  7. BERAPROST SODIUM [Concomitant]
     Dosage: 120 UG, UNK
     Route: 064
  8. CLARUTE-R [Concomitant]
     Indication: PULMONARY ARTERIAL HYPERTENSION
     Dosage: 100 MG, UNK
     Route: 064
  9. CAPROCIN [Concomitant]
     Dosage: 10000 U, UNK
     Route: 064
  10. FLOLAN [Concomitant]
     Dosage: 12 TO 169 NG (ASCENDING DOSE)
     Route: 064
  11. MEXITIL [Concomitant]
     Dosage: 150 MG, UNK
     Route: 064
  12. ASPARA K [Concomitant]
     Dosage: 300 MG, UNK
     Route: 064
  13. ASPARA K [Concomitant]
     Dosage: 600 MG, UNK
     Route: 064
  14. LEVOFLOXACIN [Concomitant]
     Indication: INFECTION PROPHYLAXIS
     Route: 042
  15. PANVITAN                           /00466101/ [Concomitant]
     Dosage: UNK, 0.3 TO 0.5 G
     Route: 048
  16. ADCIRCA [Suspect]
     Dosage: 30 MG, UNK
     Route: 064
  17. ALFAROL [Concomitant]
     Route: 048
  18. ADCIRCA [Suspect]
     Dosage: 30 MG, UNK
     Route: 064
  19. BERAPROST SODIUM [Concomitant]
     Dosage: 120 UG, UNK
     Route: 064
  20. CLARUTE-R [Concomitant]
     Dosage: 100 MG, UNK
     Route: 064
  21. TEPRENONE [Concomitant]
     Dosage: 150 MG, UNK
     Route: 064
  22. CYANOCOBALAMIN [Concomitant]
     Indication: STOMATITIS
     Dosage: 1 DF, UNK
     Route: 064
  23. FLOLAN [Concomitant]
     Indication: PULMONARY ARTERIAL HYPERTENSION
     Dosage: 12 TO 24 NG (ASCENDING DOSE)
     Route: 064
  24. FLOLAN [Concomitant]
     Dosage: 12 TO 169 NG (ASCENDING DOSE)
     Route: 064
  25. ASPARA K [Concomitant]
     Dosage: 600 MG, UNK
     Route: 064
  26. OXYGEN [Concomitant]
     Route: 064
  27. ALFAROL [Concomitant]
     Indication: VITAMIN SUPPLEMENTATION
     Route: 048
  28. ADCIRCA [Suspect]
     Dosage: 20 MG, UNK
     Route: 064
  29. ADCIRCA [Suspect]
     Dosage: 40 MG, UNK
     Route: 064
  30. ANTHROBIN P [Concomitant]
     Dosage: 214 U, UNK
     Route: 064
  31. TEPRENONE [Concomitant]
     Indication: ABDOMINAL PAIN UPPER
     Dosage: 150 MG, UNK
     Route: 064
  32. CYANOCOBALAMIN [Concomitant]
     Dosage: 1 DF, UNK
     Route: 064
  33. FLOLAN [Concomitant]
     Dosage: 12 TO 24 NG (ASCENDING DOSE)
     Route: 064
  34. FLOLAN [Concomitant]
     Dosage: 169 NG, UNK
     Route: 064
  35. FLOLAN [Concomitant]
     Dosage: 169 NG, UNK
     Route: 064
  36. LEVOFLOXACIN [Concomitant]
     Route: 042
  37. ADCIRCA [Suspect]
     Indication: PULMONARY ARTERIAL HYPERTENSION
     Dosage: 20 MG, UNK
     Route: 064
  38. ANTHROBIN P [Concomitant]
     Indication: THROMBOSIS PROPHYLAXIS
     Dosage: 214 U, UNK
     Route: 064
  39. MEXITIL [Concomitant]
     Indication: ARRHYTHMIA
     Dosage: 150 MG, UNK
     Route: 064
  40. OXYGEN [Concomitant]
     Indication: PULMONARY ARTERIAL HYPERTENSION
     Route: 064
  41. BERACTANT [Concomitant]
  42. PANVITAN                           /00466101/ [Concomitant]
     Indication: VITAMIN SUPPLEMENTATION
     Dosage: UNK, 0.3 TO 0.5 G
     Route: 048
  43. CAPROCIN [Concomitant]
     Indication: PROPHYLAXIS
     Dosage: 10000 U, UNK
     Route: 064
  44. HEPARIN [Concomitant]
     Indication: PROPHYLAXIS
     Dosage: 10000 U, UNK
     Route: 064
  45. ASPARA K [Concomitant]
     Indication: ARRHYTHMIA
     Dosage: 600 MG, UNK
     Route: 064
  46. ASPARA K [Concomitant]
     Dosage: 300 MG, UNK
     Route: 064
  47. HEPARIN [Concomitant]
     Dosage: 10000 U, UNK
     Route: 064
  48. BERACTANT [Concomitant]

REACTIONS (5)
  - FOETAL EXPOSURE DURING PREGNANCY [None]
  - CIRCULATORY FAILURE NEONATAL [None]
  - PREMATURE BABY [None]
  - LOW BIRTH WEIGHT BABY [None]
  - ANAEMIA NEONATAL [None]
